FAERS Safety Report 4486333-1 (Version None)
Quarter: 2004Q4

REPORT INFORMATION
  Report Type: 
  Country: None (occurrence: None)
  Receive Date: 20041027
  Receipt Date: 20041015
  Transmission Date: 20050328
  Serious: Yes (Hospitalization)
  Sender: FDA-Public Use
  Company Number: FR-JNJFOC-20040102003

PATIENT
  Age: 21 Year
  Sex: Male
  Weight: 67 kg

DRUGS (5)
  1. REMICADE [Suspect]
     Route: 042
  2. REMICADE [Suspect]
     Route: 042
  3. REMICADE [Suspect]
     Indication: ANKYLOSING SPONDYLITIS
     Route: 042
  4. METHOTREXATE [Concomitant]
     Route: 049
  5. CORTANCYL [Concomitant]
     Route: 049

REACTIONS (3)
  - DISSEMINATED INTRAVASCULAR COAGULATION [None]
  - HYPOACUSIS [None]
  - MENINGOCOCCAL SEPSIS [None]
